FAERS Safety Report 4344159-3 (Version None)
Quarter: 2004Q2

REPORT INFORMATION
  Report Type: 
  Country: None (occurrence: None)
  Receive Date: 20040419
  Receipt Date: 20040405
  Transmission Date: 20050107
  Serious: Yes (Other)
  Sender: FDA-Public Use
  Company Number: 2004-DE-01286UP

PATIENT
  Age: 69 Year
  Sex: Female

DRUGS (6)
  1. MIRAPEXIN (PRAMIPEXOLE DHIHYDROCHLORIDE) (TA) [Suspect]
     Dosage: PO
     Route: 048
  2. DIDRONEL (NR) [Concomitant]
  3. ASPIRIN [Concomitant]
  4. SENNA (SENNA)  (NR) [Concomitant]
  5. VENTOLIN (NR) [Concomitant]
  6. BECOTIDE NASAL (BECLOMETASONE DIPROPIONATE) (NR) [Concomitant]

REACTIONS (2)
  - DEEP VEIN THROMBOSIS [None]
  - NAUSEA [None]
